FAERS Safety Report 9946324 (Version 1)
Quarter: 2014Q1

REPORT INFORMATION
  Report Type: Spontaneous
  Country: US (occurrence: US)
  Receive Date: 20140303
  Receipt Date: 20140303
  Transmission Date: 20141002
  Serious: No
  Sender: FDA-Public Use
  Company Number: US-AMGEN-USASP2013078431

PATIENT
  Age: 29 Year
  Sex: Female
  Weight: 99.32 kg

DRUGS (7)
  1. ENBREL [Suspect]
     Indication: PRODUCT USED FOR UNKNOWN INDICATION
     Dosage: 50 MG, QWK
     Route: 058
  2. METHOTREXATE [Concomitant]
     Dosage: 250/10 ML
  3. ZOLOFT [Concomitant]
     Dosage: 100 MG, UNK
  4. TRAZODONE [Concomitant]
     Dosage: 100 MG, UNK
  5. IBUPROFEN [Concomitant]
     Dosage: 200 MG, UNK
  6. FOLIC ACID [Concomitant]
     Dosage: 5 MG, UNK
  7. PREDNISONE [Concomitant]
     Dosage: 5 MG, UNK

REACTIONS (3)
  - Injection site urticaria [Unknown]
  - Injection site pruritus [Unknown]
  - Injection site discolouration [Unknown]
